FAERS Safety Report 12864996 (Version 1)
Quarter: 2016Q4

REPORT INFORMATION
  Report Type: Spontaneous
  Country: IT (occurrence: IT)
  Receive Date: 20161020
  Receipt Date: 20161020
  Transmission Date: 20170207
  Serious: Yes (Hospitalization)
  Sender: FDA-Public Use
  Company Number: IT-ROCHE-1843905

PATIENT
  Age: 32 Year
  Sex: Female

DRUGS (7)
  1. RIVOTRIL [Suspect]
     Active Substance: CLONAZEPAM
     Indication: PRODUCT USED FOR UNKNOWN INDICATION
     Dosage: 2.5 MG/ML ORAL DROPS, SOLUTION^ 10 ML BOTTLE
     Route: 048
     Dates: start: 20130101, end: 20161005
  2. PALEXIA [Suspect]
     Active Substance: TAPENTADOL HYDROCHLORIDE
     Indication: PRODUCT USED FOR UNKNOWN INDICATION
     Dosage: 100 MG FILM-COATED TABLETS^ 5 TABLETS
     Route: 048
     Dates: start: 20130101, end: 20161005
  3. RIZATRIPTAN. [Concomitant]
     Active Substance: RIZATRIPTAN
  4. INDOMETHACIN. [Concomitant]
     Active Substance: INDOMETHACIN
  5. TOLEP [Suspect]
     Active Substance: OXCARBAZEPINE
     Indication: PRODUCT USED FOR UNKNOWN INDICATION
     Dosage: 300 MG TABLETS^ 50 SCORED TABLETS
     Route: 048
     Dates: start: 20141001, end: 20161005
  6. LEVOBREN [Suspect]
     Active Substance: LEVOSULPIRIDE
     Indication: PRODUCT USED FOR UNKNOWN INDICATION
     Dosage: 25 MG/ML ORAL DROPS, SOLUTION^ 1 X 20 ML BOTTLE
     Route: 048
     Dates: start: 20130101, end: 20161005
  7. LEXOTAN [Suspect]
     Active Substance: BROMAZEPAM
     Indication: PRODUCT USED FOR UNKNOWN INDICATION
     Dosage: 2.5 MG/ML-20 ML DROPPER CONTAINER
     Route: 048
     Dates: start: 20130101, end: 20161005

REACTIONS (2)
  - Hyponatraemia [Recovered/Resolved]
  - Sedation [Recovered/Resolved]

NARRATIVE: CASE EVENT DATE: 20161005
